FAERS Safety Report 8394419-4 (Version None)
Quarter: 2012Q2

REPORT INFORMATION
  Report Type: 
  Country: None (occurrence: None)
  Receive Date: 20120530
  Receipt Date: 20120523
  Transmission Date: 20120825
  Serious: Yes (Hospitalization, Other)
  Sender: FDA-Public Use
  Company Number: PHHY2012CL044462

PATIENT
  Age: 17 Year
  Sex: Female

DRUGS (2)
  1. CORTICOSTEROIDS [Concomitant]
     Dosage: UNK
  2. MIACALCIN [Suspect]
     Indication: OSTEONECROSIS
     Dosage: 2 DF, BID
     Dates: start: 20120510

REACTIONS (1)
  - SYSTEMIC LUPUS ERYTHEMATOSUS [None]
